FAERS Safety Report 8488834-8 (Version None)
Quarter: 2012Q3

REPORT INFORMATION
  Report Type: 
  Country: None (occurrence: None)
  Receive Date: 20120705
  Receipt Date: 20120629
  Transmission Date: 20120928
  Serious: Yes (Hospitalization)
  Sender: FDA-Public Use
  Company Number: ES-SANOFI-AVENTIS-2012SA046916

PATIENT
  Age: 55 Year
  Sex: Female

DRUGS (1)
  1. DOCETAXEL [Suspect]
     Indication: BREAST CANCER
     Dosage: DOSE 100 MG/M2
     Route: 042
     Dates: start: 20050926, end: 20051128

REACTIONS (3)
  - FEBRILE NEUTROPENIA [None]
  - NECROTISING COLITIS [None]
  - CAECITIS [None]
